FAERS Safety Report 25797638 (Version 1)
Quarter: 2025Q3

REPORT INFORMATION
  Report Type: Report from Study
  Country: CA (occurrence: CA)
  Receive Date: 20250912
  Receipt Date: 20250912
  Transmission Date: 20251020
  Serious: Yes (Hospitalization, Other)
  Sender: NORDIC PHARMA
  Company Number: CA-NORDICGR-063928

PATIENT
  Age: 27 Year
  Sex: Female
  Weight: 120 kg

DRUGS (40)
  1. METHOTREXATE [Suspect]
     Active Substance: METHOTREXATE
     Indication: Product used for unknown indication
     Route: 065
  2. METHOTREXATE [Suspect]
     Active Substance: METHOTREXATE
     Indication: Product used for unknown indication
     Route: 065
  3. METHYLPREDNISOLONE SODIUM SUCCINATE [Concomitant]
     Active Substance: METHYLPREDNISOLONE SODIUM SUCCINATE
     Indication: Premedication
     Route: 042
  4. RITUXIMAB [Concomitant]
     Active Substance: RITUXIMAB
     Indication: Systemic lupus erythematosus
     Route: 042
  5. SERTRALINE [Concomitant]
     Active Substance: SERTRALINE HYDROCHLORIDE
     Indication: Product used for unknown indication
     Route: 048
  6. APIXABAN [Concomitant]
     Active Substance: APIXABAN
     Indication: Deep vein thrombosis
     Route: 048
  7. INDAPAMIDE [Concomitant]
     Active Substance: INDAPAMIDE
     Indication: Hypertension
     Route: 048
  8. INDAPAMIDE [Concomitant]
     Active Substance: INDAPAMIDE
     Indication: Hypertension
     Route: 048
  9. MYCOPHENOLATE SODIUM [Concomitant]
     Active Substance: MYCOPHENOLATE SODIUM
     Indication: Systemic lupus erythematosus
     Route: 048
  10. MYCOPHENOLATE SODIUM [Concomitant]
     Active Substance: MYCOPHENOLATE SODIUM
     Indication: Systemic lupus erythematosus
     Route: 048
  11. MYCOPHENOLATE SODIUM [Concomitant]
     Active Substance: MYCOPHENOLATE SODIUM
     Indication: Systemic lupus erythematosus
     Route: 048
  12. MYCOPHENOLATE SODIUM [Concomitant]
     Active Substance: MYCOPHENOLATE SODIUM
     Indication: Systemic lupus erythematosus
     Route: 048
  13. MYCOPHENOLATE SODIUM [Concomitant]
     Active Substance: MYCOPHENOLATE SODIUM
     Indication: Systemic lupus erythematosus
     Route: 048
  14. MYCOPHENOLATE SODIUM [Concomitant]
     Active Substance: MYCOPHENOLATE SODIUM
     Indication: Systemic lupus erythematosus
     Route: 065
  15. CALCIUM CARBONATE\CALCIUM CITRATE\CALCIUM PHOSPHATE\CHOLECALCIFEROL\VI [Concomitant]
     Active Substance: CALCIUM CARBONATE\CALCIUM CITRATE\CALCIUM PHOSPHATE\CHOLECALCIFEROL\VITAMIN D
     Indication: Product used for unknown indication
     Route: 048
  16. FERRIC POLYSACCHARIDE COMPLEX [Concomitant]
     Active Substance: FERRIC POLYSACCHARIDE COMPLEX
     Indication: Product used for unknown indication
     Route: 048
  17. LEFLUNOMIDE [Concomitant]
     Active Substance: LEFLUNOMIDE
     Indication: Product used for unknown indication
     Route: 065
  18. DIPHENHYDRAMINE HYDROCHLORIDE [Concomitant]
     Active Substance: DIPHENHYDRAMINE HYDROCHLORIDE
     Indication: Premedication
     Route: 048
  19. DIPHENHYDRAMINE HYDROCHLORIDE [Concomitant]
     Active Substance: DIPHENHYDRAMINE HYDROCHLORIDE
     Indication: Premedication
     Route: 048
  20. HYDROXYCHLOROQUINE [Concomitant]
     Active Substance: HYDROXYCHLOROQUINE
     Indication: Product used for unknown indication
     Route: 048
  21. AMLODIPINE BESYLATE [Concomitant]
     Active Substance: AMLODIPINE BESYLATE
     Indication: Hypertension
     Route: 048
  22. AMLODIPINE BESYLATE [Concomitant]
     Active Substance: AMLODIPINE BESYLATE
     Indication: Hypertension
     Dosage: DOSAGE: 1 DOSAGE FORMS
     Route: 048
  23. AMLODIPINE BESYLATE [Concomitant]
     Active Substance: AMLODIPINE BESYLATE
     Indication: Hypertension
     Route: 048
  24. ACETAMINOPHEN [Concomitant]
     Active Substance: ACETAMINOPHEN
     Indication: Premedication
     Route: 048
  25. CALCIUM CARBONATE\CHOLECALCIFEROL [Concomitant]
     Active Substance: CALCIUM CARBONATE\CHOLECALCIFEROL
     Indication: Product used for unknown indication
     Dosage: DOSAGE: 1 DOSAGE FORMS
     Route: 048
  26. DIPHENHYDRAMINE [Concomitant]
     Active Substance: DIPHENHYDRAMINE
     Indication: Premedication
     Route: 048
  27. DIPHENHYDRAMINE [Concomitant]
     Active Substance: DIPHENHYDRAMINE
     Indication: Premedication
     Route: 065
  28. FOLIC ACID [Concomitant]
     Active Substance: FOLIC ACID
     Indication: Product used for unknown indication
     Route: 048
  29. FOLIC ACID [Concomitant]
     Active Substance: FOLIC ACID
     Indication: Product used for unknown indication
     Route: 048
  30. OLANZAPINE [Concomitant]
     Active Substance: OLANZAPINE
     Indication: Psychotic disorder
     Route: 048
  31. OLANZAPINE [Concomitant]
     Active Substance: OLANZAPINE
     Indication: Psychotic disorder
     Route: 048
  32. LEUCOVORIN CALCIUM [Concomitant]
     Active Substance: LEUCOVORIN CALCIUM
     Indication: Product used for unknown indication
     Route: 048
  33. LEUCOVORIN CALCIUM [Concomitant]
     Active Substance: LEUCOVORIN CALCIUM
     Indication: Product used for unknown indication
     Dosage: DOSAGE: 1 DOSAGE FORMS
     Route: 048
  34. PREDNISONE [Concomitant]
     Active Substance: PREDNISONE
     Indication: Systemic lupus erythematosus
     Route: 048
  35. FERRIC POLYSACCHARIDE COMPLEX [Concomitant]
     Active Substance: FERRIC POLYSACCHARIDE COMPLEX
     Indication: Product used for unknown indication
     Route: 048
  36. ELIQUIS [Concomitant]
     Active Substance: APIXABAN
     Indication: Deep vein thrombosis
     Route: 048
  37. ELIQUIS [Concomitant]
     Active Substance: APIXABAN
     Indication: Deep vein thrombosis
     Route: 048
  38. CALCIUM LACTATE\CALCIUM PHOSPHATE\CHOLECALCIFEROL [Concomitant]
     Active Substance: CALCIUM LACTATE\CALCIUM PHOSPHATE\CHOLECALCIFEROL
     Indication: Product used for unknown indication
     Route: 048
  39. CALCIUM LACTATE\CALCIUM PHOSPHATE\CHOLECALCIFEROL [Concomitant]
     Active Substance: CALCIUM LACTATE\CALCIUM PHOSPHATE\CHOLECALCIFEROL
     Indication: Product used for unknown indication
     Route: 048
  40. CALCIUM LACTATE\CALCIUM PHOSPHATE\CHOLECALCIFEROL [Concomitant]
     Active Substance: CALCIUM LACTATE\CALCIUM PHOSPHATE\CHOLECALCIFEROL
     Indication: Product used for unknown indication
     Dosage: DOSAGE: 1 DOSAGE FORMS
     Route: 048

REACTIONS (19)
  - Blood urine present [Recovered/Resolved]
  - Red blood cell sedimentation rate increased [Recovered/Resolved]
  - Blood creatinine increased [Recovered/Resolved]
  - Protein urine present [Recovered/Resolved]
  - Off label use [Recovered/Resolved]
  - Rash [Recovered/Resolved]
  - C-reactive protein increased [Recovered/Resolved]
  - Central nervous system lupus [Recovered/Resolved]
  - Haemoglobin decreased [Recovered/Resolved]
  - COVID-19 pneumonia [Recovered/Resolved]
  - Arthralgia [Recovered/Resolved]
  - Butterfly rash [Recovered/Resolved]
  - Nephropathy [Recovered/Resolved]
  - Lupus nephritis [Recovered/Resolved]
  - Systemic lupus erythematosus [Recovered/Resolved]
  - Mouth ulceration [Recovered/Resolved]
  - Drug ineffective [Recovered/Resolved]
  - Psychotic disorder [Recovered/Resolved]
  - Vasculitis [Recovered/Resolved]
